FAERS Safety Report 9817628 (Version 1)
Quarter: 2013Q4

REPORT INFORMATION
  Report Type: Spontaneous
  Country: US (occurrence: None)
  Receive Date: 20131223
  Receipt Date: 20131223
  Transmission Date: 20140711
  Serious: Yes (Other)
  Sender: FDA-Public Use
  Company Number: 219182

PATIENT
  Age: 71 Year
  Sex: Female

DRUGS (2)
  1. PICATO [Suspect]
     Indication: ACTINIC KERATOSIS
     Dosage: 1 TUBE APPLIED ON DAY 1 OF TREATMENT (1/2 TUBE APPLIED ON DAY 2 AND DAY 3)
     Route: 061
     Dates: start: 20120922, end: 20120922
  2. LIPITOR (ATORVASTATIN CALCIUM) [Concomitant]

REACTIONS (4)
  - Application site burn [None]
  - Application site erythema [None]
  - Application site vesicles [None]
  - Underdose [None]
